FAERS Safety Report 14268182 (Version 3)
Quarter: 2017Q4

REPORT INFORMATION
  Report Type: Report from Study
  Country: KR (occurrence: KR)
  Receive Date: 20171211
  Receipt Date: 20171220
  Transmission Date: 20180321
  Serious: Yes (Hospitalization)
  Sender: FDA-Public Use
  Company Number: KR-ROCHE-2035335

PATIENT
  Age: 72 Year
  Sex: Female
  Weight: 64.2 kg

DRUGS (16)
  1. DICHLOZID [Concomitant]
     Indication: HYPERTENSION
  2. RADISENSE [Concomitant]
     Route: 065
     Dates: start: 20161109
  3. TRASTUZUMAB EMTANSINE [Suspect]
     Active Substance: ADO-TRASTUZUMAB EMTANSINE
     Indication: HER-2 POSITIVE BREAST CANCER
     Dosage: MOST RECENT DOSE PRIOR TO SAE (235.8 MG) RECEIVED ON 08/NOV/2017
     Route: 042
     Dates: start: 20161005
  4. DUPHALAC EASY [Concomitant]
     Indication: CONSTIPATION
     Route: 065
     Dates: start: 20170816
  5. APETROL ES [Concomitant]
     Indication: WEIGHT DECREASED
     Route: 065
     Dates: start: 20171206
  6. URSA [Concomitant]
     Active Substance: URSODIOL
     Indication: ASPARTATE AMINOTRANSFERASE INCREASED
     Route: 065
     Dates: start: 20171201
  7. ATEZOLIZUMAB. [Suspect]
     Active Substance: ATEZOLIZUMAB
     Indication: HER-2 POSITIVE BREAST CANCER
     Dosage: MOST RECENT DOSE PRIOR TO SAE RECEIVED ON 08/NOV/2017, 1200 MG
     Route: 042
     Dates: start: 20161005
  8. ENTELON [Concomitant]
     Indication: OEDEMA
     Route: 065
     Dates: start: 20160813
  9. TYLENOL [Concomitant]
     Active Substance: ACETAMINOPHEN
     Indication: MYALGIA
     Route: 065
     Dates: start: 20170223
  10. AMLODIPINE [Concomitant]
     Active Substance: AMLODIPINE BESYLATE
     Indication: HYPERTENSION
  11. POTASSIUM CHLORIDE. [Concomitant]
     Active Substance: POTASSIUM CHLORIDE
     Indication: PROPHYLAXIS
     Route: 065
     Dates: start: 20171201, end: 20171201
  12. MAGNESIUM OXIDE. [Concomitant]
     Active Substance: MAGNESIUM OXIDE
     Indication: CONSTIPATION
     Route: 065
     Dates: start: 20171206
  13. FENTANYL. [Concomitant]
     Active Substance: FENTANYL
     Indication: BIOPSY LUNG
     Route: 065
     Dates: start: 20171208, end: 20171208
  14. ASPIRIN. [Concomitant]
     Active Substance: ASPIRIN
     Indication: HYPERTENSION
  15. ADELAVIN [Concomitant]
     Indication: PROPHYLAXIS
     Route: 065
     Dates: start: 20171201, end: 20171208
  16. LITAINE [Concomitant]
     Indication: BIOPSY LUNG
     Route: 065
     Dates: start: 20171208, end: 20171208

REACTIONS (1)
  - Pneumonia [Not Recovered/Not Resolved]

NARRATIVE: CASE EVENT DATE: 20171117
